FAERS Safety Report 10070512 (Version 1)
Quarter: 2014Q2

REPORT INFORMATION
  Report Type: Spontaneous
  Country: US (occurrence: US)
  Receive Date: 20140410
  Receipt Date: 20140410
  Transmission Date: 20141212
  Serious: No
  Sender: FDA-Public Use
  Company Number: US-BAYER-2014-045364

PATIENT
  Age: 66 Year
  Sex: Female
  Weight: 50.79 kg

DRUGS (2)
  1. ALEVE GELCAPS [Suspect]
     Indication: MYALGIA
     Dosage: 2 DF, PRN
     Route: 048
  2. NEXIUM [Concomitant]

REACTIONS (6)
  - Musculoskeletal stiffness [Recovered/Resolved]
  - Peripheral swelling [Recovered/Resolved]
  - Peripheral swelling [Not Recovered/Not Resolved]
  - Peripheral swelling [Not Recovered/Not Resolved]
  - Peripheral swelling [Recovered/Resolved]
  - Musculoskeletal stiffness [Recovered/Resolved]
